FAERS Safety Report 9646027 (Version 1)
Quarter: 2013Q4

REPORT INFORMATION
  Report Type: Spontaneous
  Country: GB (occurrence: GB)
  Receive Date: 20131025
  Receipt Date: 20131025
  Transmission Date: 20140711
  Serious: Yes (Other)
  Sender: FDA-Public Use
  Company Number: GB-PFIZER INC-2013304379

PATIENT
  Age: 25 Year
  Sex: Male
  Weight: 77 kg

DRUGS (1)
  1. PREGABALIN [Suspect]
     Indication: ANXIETY
     Dosage: 50 MG, 2X/DAY
     Route: 048
     Dates: start: 201305, end: 20130923

REACTIONS (1)
  - Retinal haemorrhage [Recovering/Resolving]
